FAERS Safety Report 20454547 (Version 2)
Quarter: 2023Q4

REPORT INFORMATION
  Report Type: Spontaneous
  Country: GB (occurrence: GB)
  Receive Date: 20220210
  Receipt Date: 20231123
  Transmission Date: 20240109
  Serious: Yes (Life-Threatening, Hospitalization)
  Sender: FDA-Public Use
  Company Number: GB-TEVA-2022-GB-2005450

PATIENT
  Age: 21 Year
  Sex: Male

DRUGS (6)
  1. SERTRALINE [Suspect]
     Active Substance: SERTRALINE HYDROCHLORIDE
     Indication: Depression
     Route: 065
  2. MIRTAZAPINE [Suspect]
     Active Substance: MIRTAZAPINE
     Indication: Depression
     Route: 065
  3. MAGNESIUM [Suspect]
     Active Substance: MAGNESIUM
     Indication: Cardiotoxicity
     Route: 065
  4. SODIUM CHLORIDE [Concomitant]
     Active Substance: SODIUM CHLORIDE
     Indication: Blood pressure abnormal
     Route: 065
  5. NALOXONE [Concomitant]
     Active Substance: NALOXONE
     Indication: Drug therapy
     Dosage: BOLUS
     Route: 042
  6. NALOXONE [Concomitant]
     Active Substance: NALOXONE
     Dosage: INFUSION
     Route: 065

REACTIONS (5)
  - Cardiotoxicity [Recovered/Resolved]
  - Metabolic acidosis [Recovering/Resolving]
  - Respiratory acidosis [Recovering/Resolving]
  - Brugada syndrome [Recovered/Resolved]
  - Drug ineffective [Unknown]
